FAERS Safety Report 13796562 (Version 1)
Quarter: 2017Q3

REPORT INFORMATION
  Report Type: Report from Study
  Country: US (occurrence: US)
  Receive Date: 20170726
  Receipt Date: 20170726
  Transmission Date: 20171127
  Serious: No
  Sender: FDA-Public Use
  Company Number: US-AMGEN-USASL2017019118

PATIENT
  Age: 65 Year
  Sex: Female

DRUGS (2)
  1. KYPROLIS [Suspect]
     Active Substance: CARFILZOMIB
     Indication: PLASMA CELL MYELOMA
     Dosage: UNK
     Route: 065
  2. KYPROLIS [Suspect]
     Active Substance: CARFILZOMIB
     Dosage: UNK
     Route: 065
     Dates: start: 20170126

REACTIONS (9)
  - Gastrointestinal disorder [Unknown]
  - Tongue coated [Unknown]
  - Insomnia [Unknown]
  - Platelet count decreased [Unknown]
  - Pharyngeal oedema [Unknown]
  - Influenza [Unknown]
  - Glossodynia [Unknown]
  - Vision blurred [Unknown]
  - Cognitive disorder [Unknown]

NARRATIVE: CASE EVENT DATE: 201704
